FAERS Safety Report 25525382 (Version 1)
Quarter: 2025Q3

REPORT INFORMATION
  Report Type: Spontaneous
  Country: US (occurrence: US)
  Receive Date: 20250707
  Receipt Date: 20250707
  Transmission Date: 20251021
  Serious: Yes (Death)
  Sender: MALLINCKRODT
  Company Number: US-MALLINCKRODT-MNK202503979

PATIENT
  Sex: Male

DRUGS (12)
  1. CORTICOTROPIN [Suspect]
     Active Substance: CORTICOTROPIN
     Indication: Nephrotic syndrome
     Dosage: 80 UNITS
     Route: 058
     Dates: start: 20250107, end: 2025
  2. CORTICOTROPIN [Suspect]
     Active Substance: CORTICOTROPIN
     Indication: Nephrotic syndrome
  3. ATORVASTATIN [Concomitant]
     Active Substance: ATORVASTATIN
  4. BUMETANIDE [Concomitant]
     Active Substance: BUMETANIDE
  5. ELIQUIS [Concomitant]
     Active Substance: APIXABAN
  6. METOPROLOL TARTRATE [Concomitant]
     Active Substance: METOPROLOL TARTRATE
  7. PANTOPRAZOLE [Concomitant]
     Active Substance: PANTOPRAZOLE
  8. POTASSIUM [Concomitant]
     Active Substance: POTASSIUM
  9. PREDNISONE [Concomitant]
     Active Substance: PREDNISONE
  10. TYLENOL [Concomitant]
     Active Substance: ACETAMINOPHEN
  11. TACROLIMUS [Concomitant]
     Active Substance: TACROLIMUS
  12. VALSARTAN [Concomitant]
     Active Substance: VALSARTAN

REACTIONS (1)
  - Death [Fatal]

NARRATIVE: CASE EVENT DATE: 20250101
